FAERS Safety Report 12423039 (Version 3)
Quarter: 2016Q3

REPORT INFORMATION
  Report Type: Spontaneous
  Country: US (occurrence: US)
  Receive Date: 20160601
  Receipt Date: 20160830
  Transmission Date: 20161109
  Serious: Yes (Hospitalization)
  Sender: FDA-Public Use
  Company Number: US-PFIZER INC-2016263925

PATIENT
  Age: 51 Year
  Sex: Female

DRUGS (1)
  1. VENLAFAXINE HCL [Suspect]
     Active Substance: VENLAFAXINE HYDROCHLORIDE
     Dosage: 75 MG, 3X/DAY
     Dates: start: 201605

REACTIONS (6)
  - Feeling abnormal [Unknown]
  - Anger [Unknown]
  - Mood swings [Unknown]
  - Drug intolerance [Unknown]
  - Depression [Unknown]
  - Tachyphrenia [Unknown]
